FAERS Safety Report 4839150-4 (Version None)
Quarter: 2005Q4

REPORT INFORMATION
  Report Type: 
  Country: None (occurrence: None)
  Receive Date: 20051031
  Receipt Date: 20050729
  Transmission Date: 20060501
  Serious: No
  Sender: FDA-Public Use
  Company Number: 200516639US

PATIENT
  Sex: Male
  Weight: 105 kg

DRUGS (6)
  1. KETEK [Suspect]
     Indication: PROSTATITIS
     Dosage: 400MG BID PO
     Route: 048
  2. AMOXICILLIN [Concomitant]
  3. CIPROFLOXACIN [Concomitant]
  4. FLAGYL [Concomitant]
  5. ERYTHROMYCIN [Concomitant]
  6. LEXAPRO [Concomitant]

REACTIONS (1)
  - HYPOAESTHESIA [None]
